FAERS Safety Report 7184265-1 (Version None)
Quarter: 2010Q4

REPORT INFORMATION
  Report Type: 
  Country: None (occurrence: None)
  Receive Date: 20101222
  Receipt Date: 20101208
  Transmission Date: 20110411
  Serious: Yes (Hospitalization, Other)
  Sender: FDA-Public Use
  Company Number: PHHY2010JP66887

PATIENT
  Sex: Male

DRUGS (10)
  1. AMN107 AMN+CAP [Suspect]
     Dosage: 400MG
     Route: 048
     Dates: start: 20091110, end: 20091112
  2. AMN107 AMN+CAP [Suspect]
     Dosage: 400MG
     Route: 048
     Dates: start: 20100330, end: 20100413
  3. AMN107 AMN+CAP [Suspect]
     Dosage: 200MG
     Route: 048
     Dates: start: 20100427, end: 20100525
  4. AMN107 AMN+CAP [Suspect]
     Dosage: 200 MG DAILY
     Dates: start: 20100722
  5. GLEEVEC [Concomitant]
     Indication: CHRONIC MYELOID LEUKAEMIA
     Dosage: 300MG
     Route: 048
     Dates: start: 20091124, end: 20100304
  6. GLEEVEC [Concomitant]
     Dosage: UNK
     Dates: start: 20090403, end: 20091103
  7. CELESTAMINE TAB [Concomitant]
     Indication: RASH
     Dosage: 1 DF
     Route: 048
     Dates: start: 20091215
  8. HYDREA [Concomitant]
     Indication: CHRONIC MYELOID LEUKAEMIA
     Dosage: 1 DF
     Route: 048
     Dates: start: 20100608, end: 20100705
  9. MEVALOTIN [Concomitant]
     Indication: HYPERLIPIDAEMIA
     Dosage: 10MG
     Route: 048
     Dates: start: 20100622
  10. GASTER D [Concomitant]
     Dosage: 10MG
     Route: 048
     Dates: start: 20100622

REACTIONS (4)
  - ANGINA PECTORIS [None]
  - CORONARY ARTERY OCCLUSION [None]
  - LIPASE INCREASED [None]
  - VASCULAR GRAFT [None]
